FAERS Safety Report 17103487 (Version 1)
Quarter: 2019Q4

REPORT INFORMATION
  Report Type: Spontaneous
  Country: US (occurrence: US)
  Receive Date: 20191202
  Receipt Date: 20191202
  Transmission Date: 20200122
  Serious: Yes (Hospitalization, Other)
  Sender: FDA-Public Use
  Company Number: None

PATIENT
  Age: 37 Year
  Sex: Female

DRUGS (10)
  1. ACETAZOLAMIDE 500MG TWICE DAILY [Concomitant]
  2. TIZANIDINE 4-8MG AT BEDTIME [Concomitant]
  3. OCREVUS [Suspect]
     Active Substance: OCRELIZUMAB
     Indication: RELAPSING MULTIPLE SCLEROSIS
     Dosage: ?          OTHER FREQUENCY:EVERY 6 MONTHS;?
     Route: 041
     Dates: start: 20180701, end: 20191202
  4. DESVENLAFAXINE 50MG DAILY [Concomitant]
  5. MAGNESIUM 400MG DAILY [Concomitant]
  6. NORTRIPTYLINE 100MG AT BEDTIME [Concomitant]
  7. MUTIVITAMIN WITH IRON DAILY [Concomitant]
  8. VITAMIN B12 1000MCG DAILY [Concomitant]
  9. LISINOPRIL 20MG DAILY [Concomitant]
  10. VITAMIN D3 [Concomitant]
     Active Substance: CHOLECALCIFEROL

REACTIONS (3)
  - Heart rate increased [None]
  - Syncope [None]
  - Ventricular hypertrophy [None]

NARRATIVE: CASE EVENT DATE: 20191120
